FAERS Safety Report 13961029 (Version 1)
Quarter: 2017Q3

REPORT INFORMATION
  Report Type: Spontaneous
  Country: US (occurrence: US)
  Receive Date: 20170912
  Receipt Date: 20170912
  Transmission Date: 20171128
  Serious: No
  Sender: FDA-Public Use
  Company Number: US-GLAXOSMITHKLINE-US2017139809

PATIENT
  Age: 41 Year
  Sex: Female

DRUGS (1)
  1. BENLYSTA [Suspect]
     Active Substance: BELIMUMAB
     Indication: PRODUCT USED FOR UNKNOWN INDICATION
     Dosage: 1064 MG, UNK

REACTIONS (3)
  - Infusion site extravasation [Recovering/Resolving]
  - Infusion site induration [Recovering/Resolving]
  - Skin induration [Recovering/Resolving]

NARRATIVE: CASE EVENT DATE: 20170908
